FAERS Safety Report 8143064 (Version 2)
Quarter: 2012Q4

REPORT INFORMATION
  Report Type: 
  Country: US (occurrence: US)
  Receive Date: 20110919
  Receipt Date: 20121001
  Transmission Date: 20130627
  Serious: No
  Sender: FDA-Public Use
  Company Number: US-MUTUAL PHARMACEUTICAL COMPANY, INC.-CLND20110001

PATIENT
  Age: 68 Year
  Sex: Male
  Weight: 90.8 kg

DRUGS (5)
  1. CLONIDINE TABLETS 0.3 MG [Suspect]
     Indication: HYPERTENSION
     Route: 048
     Dates: start: 201009, end: 201108
  2. DILTIAZEM [Concomitant]
     Indication: HYPERTENSION
     Route: 048
  3. TERAZOSIN [Concomitant]
     Indication: HYPERTENSION
     Route: 048
  4. LISINOPRIL [Concomitant]
     Indication: HYPERTENSION
     Route: 048
  5. NIACIN [Concomitant]
     Indication: DRUG USE FOR UNKNOWN INDICATION
     Route: 048

REACTIONS (3)
  - Ileus [Recovered/Resolved]
  - Constipation [Recovered/Resolved]
  - Fatigue [Recovered/Resolved]
